FAERS Safety Report 9798662 (Version 1)
Quarter: 2014Q1

REPORT INFORMATION
  Report Type: Spontaneous
  Country: US (occurrence: US)
  Receive Date: 20140106
  Receipt Date: 20140106
  Transmission Date: 20141002
  Serious: No
  Sender: FDA-Public Use
  Company Number: US-GILEAD-2010-0029614

PATIENT
  Age: 71 Year
  Sex: Male

DRUGS (15)
  1. LETAIRIS [Suspect]
     Indication: PULMONARY ARTERIAL HYPERTENSION
     Route: 048
  2. LETAIRIS [Suspect]
     Route: 048
     Dates: start: 20091120
  3. COUMADIN [Concomitant]
  4. ZOLOFT [Concomitant]
  5. POTASSIUM [Concomitant]
  6. NIASPAN [Concomitant]
  7. MIRAPEX [Concomitant]
  8. LOPRESSOR [Concomitant]
  9. METFORMIN [Concomitant]
  10. LIDODERM [Concomitant]
  11. MOTRIN [Concomitant]
  12. LASIX [Concomitant]
  13. DIGOXIN [Concomitant]
  14. SINEMET [Concomitant]
  15. ZAROXOLYN [Concomitant]

REACTIONS (1)
  - Fluid retention [Not Recovered/Not Resolved]
